FAERS Safety Report 4700034-3 (Version None)
Quarter: 2005Q2

REPORT INFORMATION
  Report Type: 
  Country: None (occurrence: None)
  Receive Date: 20050623
  Receipt Date: 20050609
  Transmission Date: 20051028
  Serious: Yes (Hospitalization, Other)
  Sender: FDA-Public Use
  Company Number: 200411467BCC

PATIENT
  Age: 79 Year
  Sex: Male
  Weight: 107.5025 kg

DRUGS (13)
  1. ALEVE [Suspect]
     Indication: DEMENTIA ALZHEIMER'S TYPE
     Dosage: BID, ORAL
     Route: 048
     Dates: start: 20020115, end: 20040322
  2. ALEVE [Suspect]
     Indication: PROPHYLAXIS
     Dosage: BID, ORAL
     Route: 048
     Dates: start: 20020115, end: 20040322
  3. ASPIRIN [Suspect]
     Indication: CARDIAC DISORDER
     Dosage: 81 MG, QD, ORAL
     Route: 048
     Dates: start: 20011201
  4. ASPIRIN [Suspect]
     Indication: PROPHYLAXIS
     Dosage: 81 MG, QD, ORAL
     Route: 048
     Dates: start: 20011201
  5. PLAVIX [Suspect]
     Indication: ANTICOAGULANT THERAPY
     Dosage: 75 MG, QD, ORAL
     Route: 048
     Dates: start: 20040301
  6. GLUCOSAMINE W/CHONDROITIN SULFATES [Concomitant]
  7. MULTI-VITAMIN [Concomitant]
  8. TIMOPTIC-XE [Concomitant]
  9. XALATAN [Concomitant]
  10. TYLENOL [Concomitant]
  11. ZOCOR [Concomitant]
  12. METOPROLOL [Concomitant]
  13. ALTACE [Concomitant]

REACTIONS (12)
  - ANAEMIA [None]
  - ARTERIOVENOUS MALFORMATION [None]
  - ASTHENIA [None]
  - COLONIC POLYP [None]
  - DIVERTICULUM [None]
  - FALL [None]
  - GASTRITIS [None]
  - GASTROINTESTINAL DISORDER [None]
  - HAEMORRHOIDS [None]
  - HIATUS HERNIA [None]
  - MYOCARDIAL INFARCTION [None]
  - OESOPHAGEAL SPASM [None]
